FAERS Safety Report 20037854 (Version 1)
Quarter: 2021Q4

REPORT INFORMATION
  Report Type: Spontaneous
  Country: None (occurrence: US)
  Receive Date: 20211105
  Receipt Date: 20211105
  Transmission Date: 20220303
  Serious: No
  Sender: FDA-Public Use
  Company Number: US-AKCEA THERAPEUTICS, INC.-2021IS001741

PATIENT
  Sex: Male

DRUGS (2)
  1. TEGSEDI [Suspect]
     Active Substance: INOTERSEN SODIUM
     Indication: Product used for unknown indication
     Route: 058
     Dates: start: 20200512
  2. DEVICE [Suspect]
     Active Substance: DEVICE

REACTIONS (5)
  - Blood creatinine increased [Unknown]
  - Urine protein/creatinine ratio increased [Unknown]
  - Glucose urine present [Unknown]
  - Urine ketone body present [Unknown]
  - Protein urine present [Unknown]

NARRATIVE: CASE EVENT DATE: 20210930
